FAERS Safety Report 5252917-6 (Version None)
Quarter: 2007Q1

REPORT INFORMATION
  Report Type: 
  Country: None (occurrence: None)
  Receive Date: 20070227
  Receipt Date: 20070215
  Transmission Date: 20070707
  Serious: Yes (Other)
  Sender: FDA-Public Use
  Company Number: GXKR2007SE01381

PATIENT
  Age: 80 Year
  Sex: Female

DRUGS (2)
  1. CIPROFLOXACIN [Suspect]
     Indication: DIVERTICULITIS
  2. METRONIDAZOLE [Suspect]
     Indication: DIVERTICULITIS

REACTIONS (1)
  - CLOSTRIDIUM DIFFICILE COLITIS [None]
